FAERS Safety Report 5800213-8 (Version None)
Quarter: 2008Q3

REPORT INFORMATION
  Report Type: 
  Country: None (occurrence: None)
  Receive Date: 20080703
  Receipt Date: 20080620
  Transmission Date: 20090109
  Serious: Yes (Hospitalization, Other)
  Sender: FDA-Public Use
  Company Number: ZA-ELI_LILLY_AND_COMPANY-ZA200806005256

PATIENT
  Age: 26 Year
  Sex: Female

DRUGS (4)
  1. CYMBALTA [Suspect]
     Indication: MAJOR DEPRESSION
     Dosage: 60 MG, DAILY (1/D)
     Route: 048
  2. CYMBALTA [Suspect]
     Dosage: 90 MG, DAILY (1/D)
     Route: 048
  3. URBANOL [Concomitant]
     Dosage: 5 MG, 3/D
     Route: 048
     Dates: start: 20080615
  4. ALCOHOL [Concomitant]

REACTIONS (3)
  - FATIGUE [None]
  - HOSPITALISATION [None]
  - SUICIDE ATTEMPT [None]
